FAERS Safety Report 18298370 (Version 4)
Quarter: 2020Q4

REPORT INFORMATION
  Report Type: Spontaneous
  Country: CA (occurrence: CA)
  Receive Date: 20200922
  Receipt Date: 20201111
  Transmission Date: 20210113
  Serious: Yes (Hospitalization, Other)
  Sender: FDA-Public Use
  Company Number: CA-SHIRE-CA202030028

PATIENT

DRUGS (4)
  1. GAMMAGARD LIQUID [Suspect]
     Active Substance: HUMAN IMMUNOGLOBULIN G
     Indication: IMMUNE THROMBOCYTOPENIA
     Dosage: 10 GRAM, UNKNOWN
     Route: 042
  2. GAMMAGARD LIQUID [Suspect]
     Active Substance: HUMAN IMMUNOGLOBULIN G
     Dosage: 20 GRAM, UNKNOWN
     Route: 042
  3. GAMMAGARD LIQUID [Suspect]
     Active Substance: HUMAN IMMUNOGLOBULIN G
     Dosage: 50 GRAM (1G/KG), UNKNOWN
     Route: 042
     Dates: start: 20200813, end: 20200813
  4. PLATELETS [Concomitant]
     Active Substance: HUMAN PLATELET, ALLOGENIC
     Indication: PRODUCT USED FOR UNKNOWN INDICATION

REACTIONS (19)
  - Myocardial ischaemia [Recovered/Resolved with Sequelae]
  - Transfusion-associated dyspnoea [Recovered/Resolved with Sequelae]
  - Febrile nonhaemolytic transfusion reaction [Recovered/Resolved with Sequelae]
  - Product administration error [Unknown]
  - Pyrexia [Recovered/Resolved with Sequelae]
  - Periorbital oedema [Recovered/Resolved with Sequelae]
  - Bronchospasm [Recovered/Resolved with Sequelae]
  - Hypoxia [Recovered/Resolved with Sequelae]
  - Infusion related reaction [Recovered/Resolved with Sequelae]
  - Hypertension [Recovered/Resolved with Sequelae]
  - Sinus tachycardia [Recovered/Resolved with Sequelae]
  - Tachycardia [Recovered/Resolved with Sequelae]
  - Chills [Recovered/Resolved with Sequelae]
  - Eye swelling [Recovered/Resolved with Sequelae]
  - Ischaemia [Recovered/Resolved with Sequelae]
  - Transfusion-related circulatory overload [Recovered/Resolved with Sequelae]
  - Angioedema [Recovered/Resolved with Sequelae]
  - Pulmonary oedema [Recovered/Resolved with Sequelae]
  - Neutrophil count decreased [Recovered/Resolved with Sequelae]

NARRATIVE: CASE EVENT DATE: 20200813
